FAERS Safety Report 6918709-4 (Version None)
Quarter: 2010Q3

REPORT INFORMATION
  Report Type: 
  Country: None (occurrence: None)
  Receive Date: 20100811
  Receipt Date: 20100805
  Transmission Date: 20110219
  Serious: Yes (Death, Other)
  Sender: FDA-Public Use
  Company Number: PHHY2010TW15553

PATIENT
  Sex: Female

DRUGS (1)
  1. EXJADE [Suspect]
     Dosage: 750 MG, UNK
     Dates: start: 20100225

REACTIONS (3)
  - ACUTE MYELOID LEUKAEMIA [None]
  - DEATH [None]
  - MYELODYSPLASTIC SYNDROME TRANSFORMATION [None]
